FAERS Safety Report 22659906 (Version 1)
Quarter: 2023Q2

REPORT INFORMATION
  Report Type: Spontaneous
  Country: US (occurrence: None)
  Receive Date: 20230627
  Receipt Date: 20230627
  Transmission Date: 20230722
  Serious: No
  Sender: FDA-Public Use
  Company Number: None

PATIENT
  Age: 34 Year
  Sex: Female
  Weight: 87.75 kg

DRUGS (6)
  1. GUANFACINE ER [Suspect]
     Active Substance: GUANFACINE HYDROCHLORIDE
     Indication: Attention deficit hyperactivity disorder
     Dosage: OTHER QUANTITY : 1 TABLET(S);?FREQUENCY : AT BEDTIME;?
     Route: 048
     Dates: start: 20230417, end: 20230625
  2. LIDOCAINE [Suspect]
     Active Substance: LIDOCAINE
  3. VILAZODONE [Concomitant]
     Active Substance: VILAZODONE
  4. SPIRONOLACTONE [Concomitant]
     Active Substance: SPIRONOLACTONE
  5. D2 ERGO [Concomitant]
  6. ESZOPICLONE [Concomitant]
     Active Substance: ESZOPICLONE

REACTIONS (7)
  - Lip pain [None]
  - Pain [None]
  - Pain [None]
  - Drug ineffective [None]
  - Parasomnia [None]
  - Sleep terror [None]
  - Paradoxical drug reaction [None]

NARRATIVE: CASE EVENT DATE: 20230623
